FAERS Safety Report 8102242-0 (Version None)
Quarter: 2012Q1

REPORT INFORMATION
  Report Type: 
  Country: None (occurrence: None)
  Receive Date: 20120201
  Receipt Date: 20120119
  Transmission Date: 20120608
  Serious: Yes (Death, Hospitalization)
  Sender: FDA-Public Use
  Company Number: US-SHIRE-ALL1-2012-00309

PATIENT
  Sex: Male
  Weight: 136.5 kg

DRUGS (7)
  1. CARBATROL [Suspect]
     Dosage: 400 MG (2-200 MG CAPSULES AT BEDTIME DAILY), 1X/DAY:QD
     Route: 048
  2. CATAPRES                           /00171101/ [Concomitant]
     Indication: PRODUCT USED FOR UNKNOWN INDICATION
     Dosage: UNK ( 0.1MG HALF TABLET 4 TIMES A DAY), 4X/DAY:QID
     Route: 048
  3. FELBATOL [Concomitant]
     Indication: CONVULSION
     Dosage: 800 MG ( TWO 400 MG TABLETS 3 TIMES A DAY), 3X/DAY:TID
     Route: 048
     Dates: start: 20100401
  4. VIMPAT [Concomitant]
     Dosage: 500 MG (FIVE-100 MG TABLETS AT BEDTIME), 1X/DAY:QD
     Route: 048
     Dates: start: 20120101
  5. VIMPAT [Concomitant]
     Indication: CONVULSION
     Dosage: 400 MG (100 MG- 4 TABLETS IN THE MORNING), 1X/DAY:QD
     Route: 048
     Dates: start: 20100101
  6. CARBATROL [Suspect]
     Indication: CONVULSION
     Dosage: 600 MG (3-200 MG CAPSULES IN THE MORNING DAILY), 1X/DAY:QD
     Route: 048
  7. CARBATROL [Suspect]
     Dosage: 400 MG (2-200 MG CAPSULES AT NOON DAILY), 1X/DAY:QD
     Route: 048

REACTIONS (3)
  - OVERDOSE [None]
  - CHOKING [None]
  - ACUTE RESPIRATORY DISTRESS SYNDROME [None]
